FAERS Safety Report 5928880-9 (Version None)
Quarter: 2008Q4

REPORT INFORMATION
  Report Type: 
  Country: None (occurrence: None)
  Receive Date: 20081021
  Receipt Date: 20081015
  Transmission Date: 20090506
  Serious: Yes (Death)
  Sender: FDA-Public Use
  Company Number: AZADE200800377

PATIENT
  Age: 70 Year
  Sex: Male

DRUGS (1)
  1. VIDAZA [Suspect]
     Indication: ACUTE MYELOID LEUKAEMIA
     Dosage: (75 MG/M2),SUBCUTANEOUS
     Route: 058
     Dates: start: 20081008, end: 20081012

REACTIONS (1)
  - RENAL FAILURE ACUTE [None]
